FAERS Safety Report 7943797-6 (Version None)
Quarter: 2011Q4

REPORT INFORMATION
  Report Type: 
  Country: None (occurrence: None)
  Receive Date: 20111128
  Receipt Date: 20111117
  Transmission Date: 20120403
  Serious: Yes (Hospitalization)
  Sender: FDA-Public Use
  Company Number: DE-ROCHE-1014398

PATIENT
  Age: 43 Year
  Sex: Male

DRUGS (11)
  1. MARCUMAR [Concomitant]
  2. VALORON [Concomitant]
  3. DREISAFER [Concomitant]
  4. CALCIVIT D [Concomitant]
  5. TORSEMIDE [Concomitant]
  6. LEFLUNOMIDE [Concomitant]
     Indication: RHEUMATOID ARTHRITIS
     Dates: start: 20060601
  7. PREDNISOLONE [Concomitant]
  8. NOVALGIN [Concomitant]
  9. ACTEMRA [Suspect]
     Indication: RHEUMATOID ARTHRITIS
     Dosage: CUMULATIVE DOSAGE UNTIL OCT-2010 (JUST PRIOR TO EVENT): 9600 MG
     Dates: start: 20090901
  10. PANTOPRAZOLE SODIUM [Concomitant]
  11. AMITRIPTYLINE HCL [Concomitant]

REACTIONS (1)
  - TRANSIENT ISCHAEMIC ATTACK [None]
